FAERS Safety Report 6488233-4 (Version None)
Quarter: 2009Q4

REPORT INFORMATION
  Report Type: 
  Country: None (occurrence: None)
  Receive Date: 20091210
  Receipt Date: 20091204
  Transmission Date: 20100525
  Serious: Yes (Hospitalization)
  Sender: FDA-Public Use
  Company Number: B0613476A

PATIENT
  Sex: Female

DRUGS (4)
  1. LANOXIN [Suspect]
     Indication: ATRIAL FIBRILLATION
     Dosage: .125MG PER DAY
     Route: 048
  2. ALLOPURINOL [Concomitant]
     Dosage: 300MG PER DAY
     Route: 048
  3. WARFARIN SODIUM [Concomitant]
     Route: 048
  4. FRUSEMIDE + SPIRONOLACTONE [Concomitant]
     Route: 048

REACTIONS (3)
  - BRADYARRHYTHMIA [None]
  - HYPERHIDROSIS [None]
  - SYNCOPE [None]
